FAERS Safety Report 12709256 (Version 4)
Quarter: 2016Q4

REPORT INFORMATION
  Report Type: Spontaneous
  Country: CO (occurrence: CO)
  Receive Date: 20160901
  Receipt Date: 20161214
  Transmission Date: 20170207
  Serious: Yes (Hospitalization)
  Sender: FDA-Public Use
  Company Number: CO-BIOMARINAP-CO-2016-110923

PATIENT
  Age: 48 Year
  Sex: Male
  Weight: 60 kg

DRUGS (3)
  1. VIMIZIM [Suspect]
     Active Substance: ELOSULFASE ALFA
     Indication: MUCOPOLYSACCHARIDOSIS IV
     Dosage: 120 MG, QW
     Route: 042
     Dates: start: 20160421
  2. ACETAMINOPHEN. [Concomitant]
     Active Substance: ACETAMINOPHEN
     Indication: PRODUCT USED FOR UNKNOWN INDICATION
  3. LORATADINE. [Concomitant]
     Active Substance: LORATADINE
     Indication: PRODUCT USED FOR UNKNOWN INDICATION

REACTIONS (5)
  - Arthralgia [Unknown]
  - Cerebrovascular accident [Recovering/Resolving]
  - Pain in extremity [Recovering/Resolving]
  - Road traffic accident [Recovering/Resolving]
  - Facial pain [Recovering/Resolving]

NARRATIVE: CASE EVENT DATE: 20160830
